FAERS Safety Report 25995475 (Version 1)
Quarter: 2025Q4

REPORT INFORMATION
  Report Type: Spontaneous
  Country: US (occurrence: None)
  Receive Date: 20251103
  Receipt Date: 20251103
  Transmission Date: 20260118
  Serious: Yes (Hospitalization)
  Sender: FDA-CTU
  Company Number: None

PATIENT
  Sex: Male

DRUGS (8)
  1. VYNDAMAX [Suspect]
     Active Substance: TAFAMIDIS
     Indication: Acquired ATTR amyloidosis
     Dosage: TAKE 1 CAPSULE (61 MG) BY MOUTH DAILY.?
     Route: 048
     Dates: start: 20250328
  2. ELIQUIS [Concomitant]
     Active Substance: APIXABAN
  3. LASIX TAB 40MG [Concomitant]
  4. MULTI-VITAMN TAB [Concomitant]
  5. THIAMINE HGL TAB 100MG [Concomitant]
  6. TRELEGY AER 100MGG [Concomitant]
  7. VITAM1N B-12TAB 2000MGG [Concomitant]
  8. VITAMIN D GAP 400UNIT [Concomitant]

REACTIONS (6)
  - Confusional state [None]
  - Diarrhoea [None]
  - Vomiting [None]
  - Dizziness postural [None]
  - Dizziness [None]
  - Dyspnoea [None]
